FAERS Safety Report 4341355-6 (Version None)
Quarter: 2004Q2

REPORT INFORMATION
  Report Type: 
  Country: None (occurrence: None)
  Receive Date: 20040412
  Receipt Date: 20040123
  Transmission Date: 20050107
  Serious: Yes (Other)
  Sender: FDA-Public Use
  Company Number: ENTC2004-0004(0)

PATIENT
  Age: 54 Year
  Sex: Male

DRUGS (3)
  1. STALEVO 50 [Suspect]
     Indication: PARKINSON'S DISEASE
     Dosage: 25 MG/100 MG/200 MG 2 TIMES DAILY, ORAL
     Route: 048
  2. MIRAPEX [Concomitant]
  3. LORAZEPAM [Concomitant]

REACTIONS (1)
  - HEPATIC ENZYME INCREASED [None]
